FAERS Safety Report 9176437 (Version 1)
Quarter: 2013Q1

REPORT INFORMATION
  Report Type: Spontaneous
  Country: US (occurrence: None)
  Receive Date: 20130320
  Receipt Date: 20130320
  Transmission Date: 20140127
  Serious: Yes (Other)
  Sender: FDA-Public Use
  Company Number: None

PATIENT
  Age: 65 Year
  Sex: Female

DRUGS (1)
  1. LATANOPROST [Suspect]
     Indication: OPEN ANGLE GLAUCOMA
     Dosage: 1 DROP EACH EYE HS OPHTHALMIC?
     Dates: start: 20130220, end: 20130224

REACTIONS (4)
  - Pruritus [None]
  - Tear discolouration [None]
  - Erythema [None]
  - Product substitution issue [None]
